FAERS Safety Report 7418067-5 (Version None)
Quarter: 2011Q2

REPORT INFORMATION
  Report Type: 
  Country: None (occurrence: None)
  Receive Date: 20110415
  Receipt Date: 20110413
  Transmission Date: 20111010
  Serious: Yes (Hospitalization)
  Sender: FDA-Public Use
  Company Number: US-PFIZER INC-2011081719

PATIENT
  Sex: Male

DRUGS (2)
  1. SUTENT [Suspect]
     Indication: THYROID CANCER
     Dosage: 50 MG, 1X/DAY
     Dates: start: 20110324
  2. WARFARIN SODIUM [Suspect]
     Dosage: UNK
     Dates: end: 20110412

REACTIONS (3)
  - BLOOD PRESSURE DECREASED [None]
  - DEHYDRATION [None]
  - INTERNATIONAL NORMALISED RATIO INCREASED [None]
